FAERS Safety Report 7591489-8 (Version None)
Quarter: 2011Q3

REPORT INFORMATION
  Report Type: 
  Country: None (occurrence: None)
  Receive Date: 20110701
  Receipt Date: 20110701
  Transmission Date: 20111222
  Serious: Yes (Hospitalization)
  Sender: FDA-Public Use
  Company Number: None

PATIENT
  Age: 82 Year
  Sex: Male
  Weight: 68 kg

DRUGS (1)
  1. PRADAXA [Suspect]
     Indication: ATRIAL FIBRILLATION
     Dosage: 150MG BID PO CHRONIC
     Route: 048
     Dates: start: 20100926, end: 20110620

REACTIONS (6)
  - HAEMOGLOBIN DECREASED [None]
  - FATIGUE [None]
  - DIZZINESS [None]
  - CHEST DISCOMFORT [None]
  - ASTHENIA [None]
  - HAEMATOCRIT DECREASED [None]
